FAERS Safety Report 21605639 (Version 2)
Quarter: 2023Q4

REPORT INFORMATION
  Report Type: Report from Study
  Country: JP (occurrence: JP)
  Receive Date: 20221116
  Receipt Date: 20231224
  Transmission Date: 20240109
  Serious: Yes (Death, Hospitalization)
  Sender: FDA-Public Use
  Company Number: JP-SA-2022SA463267

PATIENT
  Age: 77 Year
  Sex: Female
  Weight: 50 kg

DRUGS (15)
  1. SARILUMAB [Suspect]
     Active Substance: SARILUMAB
     Indication: Rheumatoid arthritis
     Dosage: 200 MG, QOW
     Route: 058
     Dates: start: 20220405, end: 20221029
  2. METHOTREXATE [Suspect]
     Active Substance: METHOTREXATE
     Indication: Rheumatoid arthritis
     Dosage: 8 MG, QW
     Route: 048
     Dates: start: 20210512, end: 20221029
  3. METHOTREXATE [Suspect]
     Active Substance: METHOTREXATE
     Dosage: 6 MG, QW
     Route: 048
     Dates: start: 20070219, end: 20071216
  4. METHOTREXATE [Suspect]
     Active Substance: METHOTREXATE
     Dosage: 8 MG, QW
     Route: 048
     Dates: start: 20071217, end: 20080525
  5. METHOTREXATE [Suspect]
     Active Substance: METHOTREXATE
     Dosage: 10 MG, QW
     Route: 048
     Dates: start: 20080526, end: 20120919
  6. METHOTREXATE [Suspect]
     Active Substance: METHOTREXATE
     Dosage: 8 MG, QW
     Route: 048
     Dates: start: 20121031, end: 20121113
  7. METHOTREXATE [Suspect]
     Active Substance: METHOTREXATE
     Dosage: 10 MG, QW
     Route: 048
     Dates: start: 20121114, end: 20210131
  8. METHOTREXATE [Suspect]
     Active Substance: METHOTREXATE
     Dosage: 8 MG, QW
     Route: 048
     Dates: start: 20210201, end: 20210425
  9. METHOTREXATE [Suspect]
     Active Substance: METHOTREXATE
     Dosage: 6 MG, QW
     Route: 048
     Dates: start: 20210426, end: 20210511
  10. IGURATIMOD [Suspect]
     Active Substance: IGURATIMOD
     Indication: Rheumatoid arthritis
     Dosage: 25 MG, BID
     Route: 048
     Dates: start: 20190318, end: 20221029
  11. LOXOPROFEN SODIUM [Concomitant]
     Active Substance: LOXOPROFEN SODIUM
     Indication: Rheumatoid arthritis
     Dosage: 100 MG, PRN
     Route: 062
     Dates: start: 20180709, end: 20221029
  12. SULFAMETHOXAZOLE\TRIMETHOPRIM [Concomitant]
     Active Substance: SULFAMETHOXAZOLE\TRIMETHOPRIM
     Indication: Prophylaxis
     Dosage: 0.5 DF, QD
     Route: 048
     Dates: start: 20161225, end: 20221029
  13. FOLIC ACID [Concomitant]
     Active Substance: FOLIC ACID
     Indication: Prophylaxis
     Dosage: 1 MG, QD
     Route: 048
     Dates: start: 20121114, end: 20221029
  14. RABEPRAZOLE SODIUM [Concomitant]
     Active Substance: RABEPRAZOLE SODIUM
     Indication: Gastritis prophylaxis
     Dosage: 10 MG, QD
     Route: 048
     Dates: start: 20180709, end: 20221029
  15. SULFAMETHOXAZOLE\TRIMETHOPRIM [Concomitant]
     Active Substance: SULFAMETHOXAZOLE\TRIMETHOPRIM
     Indication: Product used for unknown indication
     Route: 048

REACTIONS (5)
  - Acute respiratory distress syndrome [Fatal]
  - Organising pneumonia [Recovering/Resolving]
  - Dyspnoea [Recovering/Resolving]
  - Pneumothorax [Recovering/Resolving]
  - Arthralgia [Unknown]

NARRATIVE: CASE EVENT DATE: 20220420
